FAERS Safety Report 25214184 (Version 5)
Quarter: 2025Q4

REPORT INFORMATION
  Report Type: Report from Study
  Country: JP (occurrence: JP)
  Receive Date: 20250418
  Receipt Date: 20251223
  Transmission Date: 20260118
  Serious: Yes (Other)
  Sender: PFIZER
  Company Number: JP-PFIZER INC-PV202500027238

PATIENT
  Age: 75 Year
  Weight: 54 kg

DRUGS (13)
  1. ELRANATAMAB [Suspect]
     Active Substance: ELRANATAMAB
     Indication: Plasma cell myeloma
     Dosage: 12 MG, SINGLE
     Route: 058
     Dates: start: 20250129, end: 20250129
  2. ELRANATAMAB [Suspect]
     Active Substance: ELRANATAMAB
     Dosage: 32 MG, SINGLE
     Route: 058
     Dates: start: 20250201, end: 20250201
  3. ELRANATAMAB [Suspect]
     Active Substance: ELRANATAMAB
     Dosage: 76 MG, SINGLE
     Route: 058
     Dates: start: 20250205, end: 20250205
  4. ELRANATAMAB [Suspect]
     Active Substance: ELRANATAMAB
     Dosage: 76 MG, SINGLE
     Route: 058
     Dates: start: 20250212, end: 20250212
  5. ELRANATAMAB [Suspect]
     Active Substance: ELRANATAMAB
     Dosage: 76 MG, SINGLE
     Route: 058
     Dates: start: 20250219, end: 20250219
  6. LANSOPRAZOLE [Concomitant]
     Active Substance: LANSOPRAZOLE
     Indication: Gastritis
     Dosage: 15 MG, DAILY
  7. AMITIZA [Concomitant]
     Active Substance: LUBIPROSTONE
     Indication: Constipation
     Dosage: 48 MG, DAILY
  8. FEBUXOSTAT [Concomitant]
     Active Substance: FEBUXOSTAT
     Indication: Hyperuricaemia
     Dosage: 20 MG, DAILY
  9. ZOVIRAX [Concomitant]
     Active Substance: ACYCLOVIR
     Indication: Antiviral prophylaxis
     Dosage: 200 MG, DAILY
  10. WARFARIN [Concomitant]
     Active Substance: WARFARIN
     Indication: Thrombosis prophylaxis
     Dosage: 2.25 MG, DAILY
  11. CALCIUM CARBONATE\CHOLECALCIFEROL\MAGNESIUM CARBONATE [Concomitant]
     Active Substance: CALCIUM CARBONATE\CHOLECALCIFEROL\MAGNESIUM CARBONATE
     Indication: Hypocalcaemia
     Dosage: 2 DF, DAILY
  12. CANDESARTAN [Concomitant]
     Active Substance: CANDESARTAN
     Indication: Hypertension
     Dosage: 4 MG, DAILY
  13. SULFAMETHOXAZOLE\TRIMETHOPRIM [Concomitant]
     Active Substance: SULFAMETHOXAZOLE\TRIMETHOPRIM
     Dosage: 1 DF, 2X/WEEK

REACTIONS (10)
  - Platelet count decreased [Recovering/Resolving]
  - Immune thrombocytopenia [Recovering/Resolving]
  - Cytokine release syndrome [Recovered/Resolved]
  - Pleural effusion [Recovering/Resolving]
  - Ascites [Recovering/Resolving]
  - Oedema [Recovering/Resolving]
  - Haemoglobin decreased [Unknown]
  - Hepatic enzyme increased [Unknown]
  - Malaise [Unknown]
  - Weight increased [Unknown]

NARRATIVE: CASE EVENT DATE: 20250101
